FAERS Safety Report 8987150 (Version 3)
Quarter: 2013Q2

REPORT INFORMATION
  Report Type: Spontaneous
  Country: US (occurrence: US)
  Receive Date: 20121227
  Receipt Date: 20130523
  Transmission Date: 20140414
  Serious: Yes (Hospitalization)
  Sender: FDA-Public Use
  Company Number: US-009507513-1212USA008611

PATIENT
  Age: 26 Year
  Sex: Female

DRUGS (1)
  1. NUVARING [Suspect]
     Indication: CONTRACEPTION
     Dosage: UNK
     Route: 067
     Dates: start: 200801, end: 200810

REACTIONS (10)
  - Pulmonary thrombosis [Unknown]
  - Pneumonia [Unknown]
  - Female sterilisation [Unknown]
  - Vitamin D deficiency [Unknown]
  - Hormone level abnormal [Unknown]
  - Blood disorder [Unknown]
  - Unintended pregnancy [Unknown]
  - Embolism [Unknown]
  - Adnexa uteri pain [Not Recovered/Not Resolved]
  - Pelvic pain [Not Recovered/Not Resolved]
